FAERS Safety Report 17087273 (Version 1)
Quarter: 2019Q4

REPORT INFORMATION
  Report Type: Spontaneous
  Country: FI (occurrence: FI)
  Receive Date: 20191128
  Receipt Date: 20191128
  Transmission Date: 20200122
  Serious: Yes (Other)
  Sender: FDA-Public Use
  Company Number: FI-AMGEN-FINSP2019197019

PATIENT
  Age: 45 Year
  Sex: Male

DRUGS (2)
  1. XGEVA [Suspect]
     Active Substance: DENOSUMAB
     Dosage: ON THE 8TH AND 15TH DAYS OF THE FIRST MONTH OF TREATMENT
     Route: 065
  2. XGEVA [Suspect]
     Active Substance: DENOSUMAB
     Indication: BONE GIANT CELL TUMOUR
     Dosage: 120 MILLIGRAM, QMO
     Route: 065

REACTIONS (3)
  - Bone loss [Unknown]
  - Bone giant cell tumour [Recovered/Resolved]
  - Inappropriate schedule of product administration [Unknown]
